FAERS Safety Report 12186923 (Version 1)
Quarter: 2016Q1

REPORT INFORMATION
  Report Type: Spontaneous
  Country: US (occurrence: None)
  Receive Date: 20160316
  Receipt Date: 20160316
  Transmission Date: 20160526
  Serious: Yes (Other)
  Sender: FDA-Public Use
  Company Number: None

PATIENT
  Age: 16 Year
  Sex: Female
  Weight: 47.63 kg

DRUGS (6)
  1. ONDANSETRON ODT 4MG AUROBINDO PHARM [Suspect]
     Active Substance: ONDANSETRON
     Indication: NAUSEA
     Dosage: 1 TABLET EVERY 8 HOURS PRN TAKEN UNDER THE TONGUE
     Dates: start: 20160315, end: 20160315
  2. BAYER WOMEN^S ONE A DAY VITAMIN [Concomitant]
  3. MAGNESIUM CITRATE. [Concomitant]
     Active Substance: MAGNESIUM CITRATE
  4. CULTURELLE PROBIOTIC [Concomitant]
  5. COLACE FOR STOOL SOFTENING [Concomitant]
  6. JUNEL [Concomitant]
     Active Substance: ETHINYL ESTRADIOL\NORETHINDRONE ACETATE

REACTIONS (4)
  - Crying [None]
  - Emotional distress [None]
  - Migraine [None]
  - Visual impairment [None]

NARRATIVE: CASE EVENT DATE: 20160315
